FAERS Safety Report 5245530-8 (Version None)
Quarter: 2007Q1

REPORT INFORMATION
  Report Type: 
  Country: None (occurrence: None)
  Receive Date: 20070216
  Receipt Date: 20070206
  Transmission Date: 20070707
  Serious: Yes (Hospitalization)
  Sender: FDA-Public Use
  Company Number: 236237

PATIENT
  Age: 58 Year
  Sex: Female
  Weight: 78 kg

DRUGS (4)
  1. MABTHERA (RITUXIMAB) CONC FOR SOLUTION FOR INFUSION [Suspect]
     Indication: RHEUMATOID ARTHRITIS
     Dosage: 1000, INTRAVENOUS
     Route: 042
     Dates: start: 20061121
  2. CACIT D3 (CALCIUM CARBONATE, CHOLECALCIFEROL) [Concomitant]
  3. TRAMADOL HCL [Concomitant]
  4. PREDNISONE TAB [Concomitant]

REACTIONS (3)
  - HEADACHE [None]
  - VERTIGO [None]
  - VOMITING [None]
